FAERS Safety Report 20513559 (Version 1)
Quarter: 2022Q1

REPORT INFORMATION
  Report Type: Spontaneous
  Country: BR (occurrence: BR)
  Receive Date: 20220224
  Receipt Date: 20220224
  Transmission Date: 20220423
  Serious: Yes (Other)
  Sender: FDA-Public Use
  Company Number: BR-PFIZER INC-202200266462

PATIENT
  Sex: Male

DRUGS (2)
  1. LORAZEPAM [Suspect]
     Active Substance: LORAZEPAM
     Dosage: 4 MG
     Dates: end: 2019
  2. TEUTO [Concomitant]
     Dosage: UNK

REACTIONS (6)
  - Drug withdrawal syndrome [Unknown]
  - Drug dependence [Unknown]
  - Mental disorder [Unknown]
  - Insomnia [Unknown]
  - Head discomfort [Unknown]
  - Suicidal ideation [Unknown]
